FAERS Safety Report 6635092-2 (Version None)
Quarter: 2010Q1

REPORT INFORMATION
  Report Type: 
  Country: None (occurrence: None)
  Receive Date: 20100315
  Receipt Date: 20100303
  Transmission Date: 20100710
  Serious: Yes (Other)
  Sender: FDA-Public Use
  Company Number: PHHY2010JP12869

PATIENT
  Age: 51 Year
  Sex: Female

DRUGS (1)
  1. ZOMETA [Suspect]
     Indication: METASTASES TO BONE
     Route: 041

REACTIONS (6)
  - BONE DISORDER [None]
  - ORAL CAVITY FISTULA [None]
  - OSTEONECROSIS [None]
  - PAIN IN JAW [None]
  - SEQUESTRECTOMY [None]
  - TOOTH EXTRACTION [None]
